FAERS Safety Report 12469518 (Version 1)
Quarter: 2016Q2

REPORT INFORMATION
  Report Type: Spontaneous
  Country: US (occurrence: US)
  Receive Date: 20160615
  Receipt Date: 20160615
  Transmission Date: 20160815
  Serious: No
  Sender: FDA-Public Use
  Company Number: US-GALDERMA-US16001961

PATIENT
  Age: 52 Year
  Sex: Male

DRUGS (2)
  1. MIRVASO [Suspect]
     Active Substance: BRIMONIDINE TARTRATE
     Indication: DERMATITIS EXFOLIATIVE
     Dosage: 0.33%
     Route: 061
     Dates: start: 20160324, end: 20160324
  2. LOCOID CREAM [Concomitant]
     Indication: ERYTHEMA
     Dosage: 0.1%
     Route: 061
     Dates: start: 20160324

REACTIONS (9)
  - Hypotension [Recovered/Resolved]
  - Pallor [Recovered/Resolved]
  - Feeling abnormal [Recovered/Resolved]
  - Asthenia [Recovered/Resolved]
  - Product use issue [Recovered/Resolved]
  - Dizziness postural [Recovered/Resolved]
  - Intentional product misuse [Recovered/Resolved]
  - Dry mouth [Recovered/Resolved]
  - Visual impairment [Recovered/Resolved]

NARRATIVE: CASE EVENT DATE: 20160324
